FAERS Safety Report 9638414 (Version 1)
Quarter: 2013Q4

REPORT INFORMATION
  Report Type: Report from Study
  Country: AU (occurrence: AU)
  Receive Date: 20131022
  Receipt Date: 20131022
  Transmission Date: 20140711
  Serious: Yes (Other)
  Sender: FDA-Public Use
  Company Number: AU-BAXTER-2013BAX041286

PATIENT
  Sex: 0

DRUGS (1)
  1. BAXTER 0.9% SODIUM CHLORIDE AND 5% GLUCOSE AHB1064 1000ML INJECTION BP [Suspect]
     Indication: SYSTEMIC INFLAMMATORY RESPONSE SYNDROME
     Dosage: 9.9 MMOL/KG

REACTIONS (1)
  - Renal failure acute [Unknown]
